FAERS Safety Report 20717591 (Version 1)
Quarter: 2022Q2

REPORT INFORMATION
  Report Type: Spontaneous
  Country: US (occurrence: US)
  Receive Date: 20220417
  Receipt Date: 20220417
  Transmission Date: 20220721
  Serious: No
  Sender: FDA-Public Use
  Company Number: US-TEVA-2022-US-2020833

PATIENT
  Age: 56 Year
  Sex: Female

DRUGS (1)
  1. AUSTEDO [Suspect]
     Active Substance: DEUTETRABENAZINE
     Dosage: 6 MILLIGRAM DAILY;
     Route: 048

REACTIONS (4)
  - Blood glucose increased [Unknown]
  - Feeling abnormal [Unknown]
  - Fatigue [Unknown]
  - Myalgia [Unknown]
